FAERS Safety Report 15835904 (Version 7)
Quarter: 2025Q2

REPORT INFORMATION
  Report Type: Spontaneous
  Country: JP (occurrence: JP)
  Receive Date: 20190117
  Receipt Date: 20250530
  Transmission Date: 20250717
  Serious: Yes (Life-Threatening, Hospitalization, Other)
  Sender: KYOWA
  Company Number: JP-KYOWAKIRIN-2019AKK000285

PATIENT

DRUGS (32)
  1. POTELIGEO [Suspect]
     Active Substance: MOGAMULIZUMAB-KPKC
     Indication: Adult T-cell lymphoma/leukaemia
     Route: 041
     Dates: start: 20181207, end: 20181207
  2. FEBUXOSTAT [Suspect]
     Active Substance: FEBUXOSTAT
     Indication: Hyperuricaemia
     Dosage: 20 MG, QD
     Route: 048
     Dates: start: 20181122, end: 20190104
  3. SULFAMETHOXAZOLE\TRIMETHOPRIM [Suspect]
     Active Substance: SULFAMETHOXAZOLE\TRIMETHOPRIM
     Indication: Antifungal prophylaxis
     Dosage: UNK UNK, 3X/WEEK
     Route: 048
     Dates: start: 20181128, end: 20190104
  4. VONOPRAZAN FUMARATE [Suspect]
     Active Substance: VONOPRAZAN FUMARATE
     Indication: Abdominal pain upper
     Dosage: 20 MG, QD
     Route: 048
     Dates: start: 20181213, end: 20190104
  5. TEPRENONE [Suspect]
     Active Substance: TEPRENONE
     Indication: Abdominal pain upper
     Dosage: 50 MG, QD
     Route: 048
     Dates: start: 20181213, end: 20190104
  6. VINDESINE [Suspect]
     Active Substance: VINDESINE
     Indication: Adult T-cell lymphoma/leukaemia
     Route: 065
     Dates: start: 20181205, end: 20181205
  7. ETOPOSIDE [Suspect]
     Active Substance: ETOPOSIDE
     Indication: Adult T-cell lymphoma/leukaemia
     Route: 065
     Dates: start: 20181205, end: 20181207
  8. CARBOPLATIN [Suspect]
     Active Substance: CARBOPLATIN
     Indication: Adult T-cell lymphoma/leukaemia
     Route: 065
     Dates: start: 20181205, end: 20181205
  9. DEXAMETHASONE [Suspect]
     Active Substance: DEXAMETHASONE
     Indication: Adult T-cell lymphoma/leukaemia
     Route: 065
     Dates: start: 20181205, end: 20181207
  10. DEXAMETHASONE [Suspect]
     Active Substance: DEXAMETHASONE
     Route: 065
     Dates: start: 20181128, end: 20181128
  11. PREDNISOLONE [Concomitant]
     Active Substance: PREDNISOLONE
     Indication: Product used for unknown indication
     Route: 065
     Dates: start: 20181112
  12. PREDNISOLONE [Concomitant]
     Active Substance: PREDNISOLONE
     Route: 065
     Dates: start: 20190104, end: 20190107
  13. PREDNISOLONE [Concomitant]
     Active Substance: PREDNISOLONE
     Route: 065
     Dates: start: 20190108, end: 20190113
  14. PREDNISOLONE [Concomitant]
     Active Substance: PREDNISOLONE
     Route: 065
     Dates: start: 20190114, end: 20190120
  15. PREDNISOLONE [Concomitant]
     Active Substance: PREDNISOLONE
     Route: 065
     Dates: start: 20190121, end: 20190214
  16. PREDNISOLONE [Concomitant]
     Active Substance: PREDNISOLONE
     Route: 065
     Dates: start: 20190215
  17. DIPHENHYDRAMINE [Concomitant]
     Active Substance: DIPHENHYDRAMINE
     Indication: Product used for unknown indication
     Route: 065
  18. HYDROCORTONE                       /00028603/ [Concomitant]
     Indication: Product used for unknown indication
     Route: 065
  19. MINODRONIC ACID [Concomitant]
     Active Substance: MINODRONIC ACID
     Indication: Product used for unknown indication
     Dosage: 50 MG, QD, RIGHT AFTER WAKING UP
     Route: 048
  20. FENOFIBRATE [Concomitant]
     Active Substance: FENOFIBRATE
     Indication: Product used for unknown indication
     Dosage: 80 MG, QD, AFTER BREAKFAST
     Route: 048
  21. BETAMETHASONE [Concomitant]
     Active Substance: BETAMETHASONE
     Indication: Product used for unknown indication
     Route: 048
  22. BETAMETHASONE [Concomitant]
     Active Substance: BETAMETHASONE
     Dosage: 0.5 MG, QD, AFTER BREAKFAST
     Route: 048
  23. BENZBROMARONE [Concomitant]
     Active Substance: BENZBROMARONE
     Indication: Product used for unknown indication
     Dosage: 25 MG, QD, AFTER BREAKFAST
     Route: 048
  24. ACETAMINOPHEN [Concomitant]
     Active Substance: ACETAMINOPHEN
     Indication: Product used for unknown indication
     Dosage: 300 MG, BID, AFTER BREAKFAST AND DINNER
     Route: 048
  25. ROZEREM [Concomitant]
     Active Substance: RAMELTEON
     Indication: Product used for unknown indication
     Dosage: 8 MG, QD, AT BEDTIME
     Route: 048
  26. LANSOPRAZOLE [Concomitant]
     Active Substance: LANSOPRAZOLE
     Indication: Product used for unknown indication
     Route: 065
  27. CEFEPIME                           /01263802/ [Concomitant]
     Indication: Product used for unknown indication
     Route: 065
     Dates: start: 20181210
  28. TEICOPLANIN [Concomitant]
     Active Substance: TEICOPLANIN
     Indication: Product used for unknown indication
     Route: 065
     Dates: start: 20181214, end: 20181218
  29. FLAGYL [Concomitant]
     Active Substance: METRONIDAZOLE\METRONIDAZOLE HYDROCHLORIDE
     Indication: Clostridium test positive
     Route: 065
     Dates: start: 20181216
  30. ELCATONIN [Concomitant]
     Active Substance: ELCATONIN
     Indication: Hypercalcaemia
     Route: 065
  31. SODIUM CHLORIDE [Concomitant]
     Active Substance: SODIUM CHLORIDE
     Indication: Hypercalcaemia
     Route: 065
  32. VITAMIN B1 [Concomitant]
     Active Substance: THIAMINE HYDROCHLORIDE
     Indication: Product used for unknown indication
     Route: 065

REACTIONS (5)
  - Stevens-Johnson syndrome [Recovering/Resolving]
  - Myelosuppression [Recovering/Resolving]
  - Clostridium test positive [Recovering/Resolving]
  - Mental disorder [Unknown]
  - Abdominal pain upper [Unknown]

NARRATIVE: CASE EVENT DATE: 20181207
